FAERS Safety Report 7299878-6 (Version None)
Quarter: 2011Q1

REPORT INFORMATION
  Report Type: 
  Country: None (occurrence: None)
  Receive Date: 20110208
  Receipt Date: 20110124
  Transmission Date: 20110831
  Serious: Yes (Death)
  Sender: FDA-Public Use
  Company Number: 2011000363

PATIENT
  Age: 44 Year
  Sex: Male

DRUGS (4)
  1. RAPAMUNE [Concomitant]
  2. TARCEVA [Suspect]
     Indication: LUNG CANCER METASTATIC
     Dosage: (150 MG, 1 X PER 1 DAY), ORAL
     Route: 048
  3. SORAFENIB [Concomitant]
  4. CELLCEPT [Suspect]
     Indication: PRODUCT USED FOR UNKNOWN INDICATION
     Dosage: ORAL
     Route: 048

REACTIONS (1)
  - DEATH [None]
